FAERS Safety Report 7354359-6 (Version None)
Quarter: 2011Q1

REPORT INFORMATION
  Report Type: 
  Country: None (occurrence: None)
  Receive Date: 20110316
  Receipt Date: 20110304
  Transmission Date: 20110831
  Serious: Yes (Life-Threatening)
  Sender: FDA-Public Use
  Company Number: JP-JNJFOC-20101103575

PATIENT
  Sex: Male

DRUGS (48)
  1. FINIBAX [Suspect]
     Indication: ABDOMINAL ABSCESS
     Route: 041
  2. AMLODIPINE [Concomitant]
     Indication: HYPERTENSION
     Route: 048
  3. MADOPAR [Concomitant]
     Indication: PARKINSONISM
     Route: 048
  4. ALDACTONE [Concomitant]
     Indication: PRODUCT USED FOR UNKNOWN INDICATION
     Route: 048
  5. RASENAZOLIN [Concomitant]
     Route: 041
  6. ACETATED RINGER'S SOLUTION WITH GLUCOSE [Concomitant]
     Route: 041
  7. LOXONIN [Concomitant]
     Indication: ANALGESIC THERAPY
     Route: 048
  8. PRAMIPEXOLE DIHYDROCHLORIDE [Concomitant]
     Indication: PARKINSONISM
     Route: 048
  9. MUCOFILIN [Concomitant]
     Indication: PRODUCTIVE COUGH
     Route: 055
  10. AZUNOL [Concomitant]
     Indication: DERMATITIS
     Route: 065
  11. ZEPOLAS [Concomitant]
     Route: 065
  12. GLYCYRRHIZIC ACID/GLYCINE/CYSTEINE [Concomitant]
     Route: 048
  13. MUCOSTA [Concomitant]
     Indication: SEDATION
     Route: 048
  14. POTASSIUM-ASPARTATE [Concomitant]
     Indication: HYPOKALAEMIC SYNDROME
     Route: 048
  15. ALDACTONE [Concomitant]
     Route: 048
  16. KENEI G (GLYCERIN) [Concomitant]
     Indication: PREOPERATIVE CARE
     Route: 065
  17. CALCICOL [Concomitant]
     Route: 041
  18. VEEN-3G [Concomitant]
     Route: 041
  19. MIYA BM [Concomitant]
     Route: 048
  20. MIYA BM [Concomitant]
     Route: 048
  21. POTASSIUM-ASPARTATE [Concomitant]
     Indication: PRODUCT USED FOR UNKNOWN INDICATION
     Route: 048
  22. POTASSIUM-ASPARTATE [Concomitant]
     Route: 048
  23. GASPORT [Concomitant]
     Route: 041
  24. FINIBAX [Suspect]
     Indication: PLEURISY
     Route: 041
  25. FLOMAX [Concomitant]
     Indication: ANTIBIOTIC THERAPY
     Route: 048
  26. LOXONIN [Concomitant]
     Route: 048
  27. LOXONIN [Concomitant]
     Route: 048
  28. MUCOSTA [Concomitant]
     Indication: PARKINSONISM
     Route: 048
  29. MADOPAR [Concomitant]
     Indication: SEDATION
     Route: 048
  30. MIYA BM [Concomitant]
     Indication: DISBACTERIOSIS
     Route: 048
  31. ALDACTONE [Concomitant]
     Route: 048
  32. ALDACTONE [Concomitant]
     Indication: HYPERTENSION
     Route: 048
  33. SOLACET-F [Concomitant]
     Route: 041
  34. BLOPRESS [Concomitant]
     Indication: HYPERTENSION
     Route: 048
  35. LOXONIN [Concomitant]
     Indication: SEDATION
     Route: 048
  36. LOXONIN [Concomitant]
     Indication: PARKINSONISM
     Route: 048
  37. TAKEPRON [Concomitant]
     Indication: ANTACID THERAPY
     Route: 048
  38. TAKEPRON [Concomitant]
     Route: 048
  39. POTASSIUM-ASPARTATE [Concomitant]
     Route: 048
  40. PURSENNID [Concomitant]
     Indication: PREOPERATIVE CARE
     Route: 048
  41. PRAMIPEXOLE DIHYDROCHLORIDE [Concomitant]
     Indication: SEDATION
     Route: 048
  42. MAGLAX [Concomitant]
     Route: 048
  43. SAXIZON [Concomitant]
     Route: 041
  44. BISOLVON [Concomitant]
     Route: 041
  45. CEFOTAX [Concomitant]
     Indication: WHITE BLOOD CELL COUNT INCREASED
     Route: 041
  46. LOXONIN [Concomitant]
     Route: 048
  47. MIYA BM [Concomitant]
     Indication: PRODUCT USED FOR UNKNOWN INDICATION
     Route: 048
  48. CEFOTAX [Concomitant]
     Indication: C-REACTIVE PROTEIN INCREASED
     Route: 041

REACTIONS (2)
  - RENAL FAILURE ACUTE [None]
  - OFF LABEL USE [None]
